FAERS Safety Report 7565885-9 (Version None)
Quarter: 2011Q2

REPORT INFORMATION
  Report Type: 
  Country: None (occurrence: None)
  Receive Date: 20110623
  Receipt Date: 20110616
  Transmission Date: 20111010
  Serious: No
  Sender: FDA-Public Use
  Company Number: US-PFIZER INC-2011132738

PATIENT
  Sex: Female
  Weight: 65.76 kg

DRUGS (5)
  1. PRAVASTATIN [Concomitant]
     Indication: BLOOD CHOLESTEROL ABNORMAL
     Dosage: 40 MG, DAILY
     Dates: start: 20060101
  2. VIVELLE-DOT [Concomitant]
     Dosage: UNK
     Route: 062
     Dates: start: 19990101
  3. PANTOPRAZOLE [Suspect]
     Indication: GASTRITIS
     Dosage: 40 MG, DAILY
     Route: 048
     Dates: start: 20100101, end: 20110615
  4. DOXEPIN [Concomitant]
     Indication: ANXIETY DISORDER
     Dosage: 75 MG, DAILY
     Dates: start: 19990101
  5. ATENOLOL [Concomitant]
     Indication: BLOOD PRESSURE ABNORMAL
     Dosage: 25 MG, UNK

REACTIONS (2)
  - DRUG INEFFECTIVE [None]
  - DYSPEPSIA [None]
